FAERS Safety Report 6525050-0 (Version None)
Quarter: 2009Q4

REPORT INFORMATION
  Report Type: 
  Country: None (occurrence: None)
  Receive Date: 20091214
  Receipt Date: 20090811
  Transmission Date: 20100525
  Serious: Yes (Other)
  Sender: FDA-Public Use
  Company Number: 650043

PATIENT
  Age: 53 Year
  Sex: Male

DRUGS (2)
  1. PEGASYS [Suspect]
     Indication: HEPATITIS C
     Dosage: 180 UG 1 PER WEEK
     Dates: start: 20090101
  2. RIBAVIRIN [Suspect]
     Indication: HEPATITIS C
     Dosage: 1200 MG DAILY
     Dates: start: 20090101

REACTIONS (7)
  - AGGRESSION [None]
  - ERYTHEMA [None]
  - HOMICIDAL IDEATION [None]
  - SCROTAL HAEMATOCOELE [None]
  - SCROTAL ULCER [None]
  - SKIN HAEMORRHAGE [None]
  - SKIN ULCER [None]
